FAERS Safety Report 5932686-4 (Version None)
Quarter: 2008Q4

REPORT INFORMATION
  Report Type: 
  Country: None (occurrence: None)
  Receive Date: 20081023
  Receipt Date: 20081009
  Transmission Date: 20090506
  Serious: Yes (Hospitalization)
  Sender: FDA-Public Use
  Company Number: 2008002481

PATIENT
  Age: 61 Year
  Sex: Female

DRUGS (3)
  1. TARCEVA [Suspect]
     Indication: NON-SMALL CELL LUNG CANCER
     Dosage: (150 MG, QD0, ORAL, (75 MG, QD), ORAL, (150 MG, QD), ORAL
     Route: 048
     Dates: start: 20080817, end: 20080904
  2. TARCEVA [Suspect]
     Indication: NON-SMALL CELL LUNG CANCER
     Dosage: (150 MG, QD0, ORAL, (75 MG, QD), ORAL, (150 MG, QD), ORAL
     Route: 048
     Dates: start: 20080919, end: 20080928
  3. TARCEVA [Suspect]
     Indication: NON-SMALL CELL LUNG CANCER
     Dosage: (150 MG, QD0, ORAL, (75 MG, QD), ORAL, (150 MG, QD), ORAL
     Route: 048
     Dates: start: 20080929

REACTIONS (9)
  - ABDOMINAL PAIN [None]
  - ANOREXIA [None]
  - BODY TEMPERATURE INCREASED [None]
  - DYSPEPSIA [None]
  - EPISTAXIS [None]
  - FLATULENCE [None]
  - HAEMOPTYSIS [None]
  - PRURITUS [None]
  - SKIN EXFOLIATION [None]
